FAERS Safety Report 19646641 (Version 1)
Quarter: 2021Q3

REPORT INFORMATION
  Report Type: Report from Study
  Country: US (occurrence: US)
  Receive Date: 20210802
  Receipt Date: 20210802
  Transmission Date: 20211014
  Serious: Yes (Hospitalization)
  Sender: FDA-Public Use
  Company Number: US-MYLANLABS-2021M1046658

PATIENT

DRUGS (2)
  1. CLOZAPINE. [Suspect]
     Active Substance: CLOZAPINE
     Dosage: 200 MILLIGRAM, QD
  2. CLOZAPINE. [Suspect]
     Active Substance: CLOZAPINE
     Indication: SCHIZOPHRENIA
     Dosage: ONCE DAILY
     Dates: end: 20210723

REACTIONS (5)
  - Diarrhoea [Recovered/Resolved]
  - Liver function test abnormal [Recovering/Resolving]
  - Liver function test increased [Recovering/Resolving]
  - Eosinophil count increased [Recovering/Resolving]
  - Therapeutic product effect increased [Recovering/Resolving]

NARRATIVE: CASE EVENT DATE: 20180321
